FAERS Safety Report 23701440 (Version 1)
Quarter: 2024Q2

REPORT INFORMATION
  Report Type: Spontaneous
  Country: US (occurrence: None)
  Receive Date: 20240402
  Receipt Date: 20240402
  Transmission Date: 20240715
  Serious: Yes (Life-Threatening, Hospitalization, Other)
  Sender: FDA-Public Use
  Company Number: None

PATIENT
  Age: 80 Year
  Sex: Male
  Weight: 84.9 kg

DRUGS (1)
  1. TECLISTAMAB [Suspect]
     Active Substance: TECLISTAMAB
     Indication: Plasma cell myeloma refractory
     Dosage: OTHER FREQUENCY : ONCE;?
     Route: 058
     Dates: start: 20240326, end: 20240326

REACTIONS (9)
  - Cytokine release syndrome [None]
  - Dyspnoea [None]
  - Wheezing [None]
  - Blood pressure increased [None]
  - Heart rate increased [None]
  - Interstitial lung abnormality [None]
  - Cardio-respiratory arrest [None]
  - Blood lactic acid increased [None]
  - Infection [None]
